FAERS Safety Report 9964068 (Version 1)
Quarter: 2014Q1

REPORT INFORMATION
  Report Type: Report from Study
  Country: NO (occurrence: NO)
  Receive Date: 20140305
  Receipt Date: 20140305
  Transmission Date: 20141002
  Serious: Yes (Hospitalization)
  Sender: FDA-Public Use
  Company Number: NO-RB-064017-14

PATIENT
  Age: 42 Year
  Sex: Male

DRUGS (3)
  1. SUBUTEX [Suspect]
     Indication: DRUG DEPENDENCE
     Dosage: AT THE TIME WHEN THE QUESTIONNAIRE WAS COMPLETED, PATIENT HAD BEEN ON SUBUTEX 2 YEARS 2 MONTHS
     Route: 065
  2. HEROIN [Suspect]
     Indication: PRODUCT USED FOR UNKNOWN INDICATION
     Dosage: DOSING DETAILS UNKNOWN
     Route: 065
  3. AMPHETAMINE [Suspect]
     Indication: PRODUCT USED FOR UNKNOWN INDICATION
     Dosage: DOSING DETAILS UNKNOWN
     Route: 065

REACTIONS (6)
  - Investigation [Unknown]
  - Drug abuse [Unknown]
  - Drug dependence [Unknown]
  - Substance abuse [Unknown]
  - Drug diversion [Unknown]
  - Intentional drug misuse [Unknown]
